FAERS Safety Report 7017577-2 (Version None)
Quarter: 2010Q3

REPORT INFORMATION
  Report Type: 
  Country: None (occurrence: None)
  Receive Date: 20100928
  Receipt Date: 20100916
  Transmission Date: 20110219
  Serious: Yes (Hospitalization, Other)
  Sender: FDA-Public Use
  Company Number: US-BAYER-201034445NA

PATIENT
  Age: 81 Year
  Sex: Male

DRUGS (8)
  1. BETASERON [Suspect]
     Indication: MULTIPLE SCLEROSIS
     Dosage: TOTAL DAILY DOSE: 8 MIU
     Route: 058
     Dates: start: 20100902, end: 20100904
  2. BETASERON [Suspect]
     Route: 058
     Dates: end: 20100830
  3. BETASERON [Suspect]
     Dosage: TOTAL DAILY DOSE: 4 MIU
     Route: 058
     Dates: start: 20100813
  4. BETASERON [Suspect]
     Dosage: TOTAL DAILY DOSE: 4 MIU
     Route: 058
     Dates: end: 20100623
  5. BETASERON [Suspect]
     Dosage: TOTAL DAILY DOSE: 2 MIU
     Route: 058
     Dates: start: 20100601
  6. SYMBICORT [Concomitant]
     Dosage: 160-4.5
  7. ALBUTEROL [Concomitant]
     Dosage: NEBULIZER 12.5MG/3
  8. PROAIR HFA [Concomitant]

REACTIONS (5)
  - COGNITIVE DISORDER [None]
  - FAECAL INCONTINENCE [None]
  - GAIT DISTURBANCE [None]
  - PNEUMONIA [None]
  - URINARY INCONTINENCE [None]
